FAERS Safety Report 4907342-1 (Version None)
Quarter: 2006Q1

REPORT INFORMATION
  Report Type: 
  Country: None (occurrence: None)
  Receive Date: 20060208
  Receipt Date: 20060208
  Transmission Date: 20060701
  Serious: Yes (Hospitalization)
  Sender: FDA-Public Use
  Company Number: None

PATIENT
  Age: 83 Year
  Sex: Male

DRUGS (12)
  1. ATENOLOL [Suspect]
     Indication: HYPERTENSION
     Dosage: 50 MG QAM
     Dates: start: 20040901
  2. PERCOCET [Concomitant]
  3. GLYBURIDE [Concomitant]
  4. LOSARTAN POTASSIUM [Concomitant]
  5. ALLOPURINOL [Concomitant]
  6. ASPIRIN [Concomitant]
  7. GABAPENTIN [Concomitant]
  8. ZOCOR [Concomitant]
  9. ZANTAC [Concomitant]
  10. NITROGLYCERIN [Concomitant]
  11. SENOKOT [Concomitant]
  12. FUROSEMIDE [Concomitant]

REACTIONS (1)
  - SINUS BRADYCARDIA [None]
